FAERS Safety Report 15851991 (Version 2)
Quarter: 2022Q1

REPORT INFORMATION
  Report Type: Spontaneous
  Country: PT (occurrence: PT)
  Receive Date: 20190122
  Receipt Date: 20220314
  Transmission Date: 20220423
  Serious: Yes (Other)
  Sender: FDA-Public Use
  Company Number: PT-AUROBINDO-AUR-APL-2019-002310

PATIENT
  Age: 74 Year
  Sex: Male

DRUGS (1)
  1. NAPROXEN [Suspect]
     Active Substance: NAPROXEN
     Indication: Product used for unknown indication
     Dosage: UNK
     Route: 065

REACTIONS (5)
  - Eosinophilia [Recovered/Resolved]
  - Bronchospasm [Recovering/Resolving]
  - Urticaria [Recovering/Resolving]
  - Drug hypersensitivity [Recovering/Resolving]
  - Asthma [Recovering/Resolving]
